FAERS Safety Report 11766097 (Version 2)
Quarter: 2015Q4

REPORT INFORMATION
  Report Type: Spontaneous
  Country: US (occurrence: US)
  Receive Date: 20151122
  Receipt Date: 20151211
  Transmission Date: 20160304
  Serious: No
  Sender: FDA-Public Use
  Company Number: US-TEVA-611461ACC

PATIENT
  Age: 19 Year
  Sex: Female
  Weight: 49.94 kg

DRUGS (1)
  1. PLAN B ONE-STEP [Suspect]
     Active Substance: LEVONORGESTREL
     Indication: POST COITAL CONTRACEPTION
     Dates: start: 20151111, end: 20151111

REACTIONS (2)
  - Pharyngitis streptococcal [Unknown]
  - Lymphadenitis [Unknown]

NARRATIVE: CASE EVENT DATE: 20151115
